FAERS Safety Report 6237874-8 (Version None)
Quarter: 2009Q2

REPORT INFORMATION
  Report Type: 
  Country: None (occurrence: None)
  Receive Date: 20090620
  Receipt Date: 20090608
  Transmission Date: 20091009
  Serious: Yes (Other)
  Sender: FDA-Public Use
  Company Number: CH-MYLANLABS-2009S1010105

PATIENT
  Age: 7 Year
  Sex: Male

DRUGS (2)
  1. METHOTREXATE [Suspect]
     Indication: LYMPHOMA
     Route: 037
  2. CYTARABINE [Concomitant]
     Indication: LYMPHOMA

REACTIONS (2)
  - CEREBELLAR ATROPHY [None]
  - NEUROTOXICITY [None]
